FAERS Safety Report 11238091 (Version 3)
Quarter: 2015Q3

REPORT INFORMATION
  Report Type: Spontaneous
  Country: GB (occurrence: GB)
  Receive Date: 20150703
  Receipt Date: 20150729
  Transmission Date: 20151125
  Serious: Yes (Hospitalization, Other)
  Sender: FDA-Public Use
  Company Number: GB-ABBVIE-15P-167-1420676-00

PATIENT
  Age: 35 Year
  Sex: Female
  Weight: 49.3 kg

DRUGS (6)
  1. VITAMIN E [Concomitant]
     Active Substance: .ALPHA.-TOCOPHEROL
     Indication: PRODUCT USED FOR UNKNOWN INDICATION
  2. CREON [Suspect]
     Active Substance: PANCRELIPASE AMYLASE\PANCRELIPASE LIPASE\PANCRELIPASE PROTEASE
     Indication: PANCREATIC INSUFFICIENCY
     Dosage: CREON 25000
     Route: 048
  3. CREON [Suspect]
     Active Substance: PANCRELIPASE AMYLASE\PANCRELIPASE LIPASE\PANCRELIPASE PROTEASE
     Dosage: CREON 40000 6-7 WITH MEALS, 1 WITH SNACKS
     Route: 048
     Dates: start: 200508, end: 201505
  4. DEOXYRIBONUCLEASE HUMAN [Concomitant]
     Indication: PRODUCT USED FOR UNKNOWN INDICATION
     Dosage: 2.5 MG NEBULIZER
  5. MULTIVITAMINS [Concomitant]
     Active Substance: VITAMINS
     Indication: PRODUCT USED FOR UNKNOWN INDICATION
     Dosage: ONE ONCE DAILY
  6. CREON [Suspect]
     Active Substance: PANCRELIPASE AMYLASE\PANCRELIPASE LIPASE\PANCRELIPASE PROTEASE
     Dosage: CREON 25000. 10-13 WITH MEALS
     Route: 048
     Dates: start: 201505

REACTIONS (10)
  - Flatulence [Recovered/Resolved]
  - Abdominal distension [Unknown]
  - Abdominal distension [Recovering/Resolving]
  - Abdominal distension [Recovered/Resolved]
  - Constipation [Recovering/Resolving]
  - Abdominal pain [Recovering/Resolving]
  - Diarrhoea [Recovering/Resolving]
  - Constipation [Recovered/Resolved]
  - Flatulence [Unknown]
  - Malabsorption [Unknown]

NARRATIVE: CASE EVENT DATE: 20150619
